FAERS Safety Report 6328544-6 (Version None)
Quarter: 2009Q3

REPORT INFORMATION
  Report Type: 
  Country: None (occurrence: None)
  Receive Date: 20090826
  Receipt Date: 20080614
  Transmission Date: 20100115
  Serious: Yes (Other)
  Sender: FDA-Public Use
  Company Number: US-ASTRAZENECA-2007UW15954

PATIENT
  Age: 13075 Day
  Sex: Female
  Weight: 68 kg

DRUGS (9)
  1. SEROQUEL [Suspect]
     Indication: BIPOLAR DISORDER
     Dosage: 25-200 MG
     Route: 048
     Dates: start: 19990308
  2. SEROQUEL [Suspect]
     Indication: DEPRESSION
     Dosage: 25-200 MG
     Route: 048
     Dates: start: 19990308
  3. SEROQUEL [Suspect]
     Dosage: 50 MG - 200 MG
     Route: 048
     Dates: start: 20000101, end: 20050101
  4. SEROQUEL [Suspect]
     Dosage: 50 MG - 200 MG
     Route: 048
     Dates: start: 20000101, end: 20050101
  5. RISPERDAL [Concomitant]
     Dates: start: 19990621
  6. FLEXERIL [Concomitant]
     Dates: start: 19980211
  7. CELEXA [Concomitant]
     Dosage: 20-60 MG
     Dates: start: 19990621
  8. PROZAC [Concomitant]
     Dosage: 40-60 MG
     Dates: start: 19980126
  9. VALIUM [Concomitant]
     Dates: start: 19980126

REACTIONS (3)
  - DIABETES MELLITUS [None]
  - IMPAIRED GASTRIC EMPTYING [None]
  - TYPE 2 DIABETES MELLITUS [None]
